FAERS Safety Report 21908734 (Version 1)
Quarter: 2023Q1

REPORT INFORMATION
  Report Type: Spontaneous
  Country: IN (occurrence: IN)
  Receive Date: 20230125
  Receipt Date: 20230125
  Transmission Date: 20230417
  Serious: Yes (Other)
  Sender: FDA-Public Use
  Company Number: IN-PFIZER INC-2018443653

PATIENT
  Age: 65 Year
  Sex: Female

DRUGS (8)
  1. PALBOCICLIB [Suspect]
     Active Substance: PALBOCICLIB
     Indication: Breast cancer metastatic
     Dosage: 125 MG, CYCLIC (21 DAYS THEN STOP FOR 7 DAYS; 21/28 DAYS)
     Route: 048
     Dates: start: 20180801
  2. LETROZOLE [Concomitant]
     Active Substance: LETROZOLE
     Indication: Breast cancer metastatic
     Dosage: 2.5 MG, ONCE DAILY
     Dates: start: 201808
  3. ZOLEDRONIC ACID [Concomitant]
     Active Substance: ZOLEDRONIC ACID
     Dosage: UNK, MONTHLY
     Dates: start: 201808, end: 202109
  4. ZOLEDRONIC ACID [Concomitant]
     Active Substance: ZOLEDRONIC ACID
     Dosage: 4 MG, EVERY 3 MONTHS
     Dates: end: 202109
  5. CALCIUM CARBONATE\CHOLECALCIFEROL [Concomitant]
     Active Substance: CALCIUM CARBONATE\CHOLECALCIFEROL
     Dosage: 500 MG, TWICE DAILY
  6. CALCIUM CARBONATE\CHOLECALCIFEROL [Concomitant]
     Active Substance: CALCIUM CARBONATE\CHOLECALCIFEROL
     Dosage: 1 DF, ONCE DAILY
     Route: 048
  7. CALCIROL [Concomitant]
     Dosage: 60000 IU, MONTHLY (WITH MILK)
  8. NEUROBION FORTE [CYANOCOBALAMIN;PYRIDOXINE HYDROCHLORIDE;THIAMINE DISU [Concomitant]
     Dosage: UNK, EVERY 3 MONTHS
     Route: 030

REACTIONS (9)
  - Colorectal adenoma [Unknown]
  - Neoplasm progression [Unknown]
  - Pruritus [Unknown]
  - Dry skin [Unknown]
  - Insomnia [Unknown]
  - Musculoskeletal disorder [Unknown]
  - Haemoglobin abnormal [Unknown]
  - White blood cell count abnormal [Unknown]
  - Neutrophil count abnormal [Unknown]

NARRATIVE: CASE EVENT DATE: 20210916
